FAERS Safety Report 6767813-2 (Version None)
Quarter: 2010Q2

REPORT INFORMATION
  Report Type: 
  Country: None (occurrence: None)
  Receive Date: 20100614
  Receipt Date: 20100604
  Transmission Date: 20101027
  Serious: Yes (Hospitalization, Other)
  Sender: FDA-Public Use
  Company Number: PHHO2010JP07419

PATIENT
  Sex: Male
  Weight: 56 kg

DRUGS (14)
  1. BLINDED ALISKIREN ALI+TAB+CF [Suspect]
     Dosage: CODE NOT BROKEN
     Route: 048
     Dates: start: 20100323, end: 20100513
  2. BLINDED ENALAPRIL COMP-ENA+ [Suspect]
     Dosage: CODE NOT BROKEN
     Route: 048
     Dates: start: 20100323, end: 20100513
  3. BLINDED NO TREATMENT RECEIVED NOMED [Suspect]
     Dosage: CODE NOT BROKEN
     Route: 048
     Dates: start: 20100323, end: 20100513
  4. COMPARATOR ENALAPRIL [Suspect]
     Indication: CARDIAC FAILURE
     Dosage: 10 MG,
     Route: 048
     Dates: start: 20100210, end: 20100215
  5. COMPARATOR ENALAPRIL [Suspect]
     Dosage: 20 MG
     Route: 048
     Dates: start: 20100216, end: 20100322
  6. ALISKIREN [Suspect]
     Indication: CARDIAC FAILURE
     Dosage: 150 MG
     Route: 048
     Dates: start: 20100302, end: 20100322
  7. BAYASPIRIN [Concomitant]
     Indication: ANTICOAGULANT THERAPY
  8. ARTIST [Concomitant]
     Indication: CARDIAC FAILURE CHRONIC
  9. AMARYL [Concomitant]
     Indication: DIABETES MELLITUS
  10. ANCARON [Concomitant]
     Indication: VENTRICULAR EXTRASYSTOLES
  11. ALOSITOL [Concomitant]
     Indication: HYPERURICAEMIA
  12. WARFARIN POTASSIUM [Concomitant]
     Indication: ATRIAL FIBRILLATION
  13. GLORIAMIN [Concomitant]
  14. RENIVACE [Concomitant]

REACTIONS (11)
  - DECREASED APPETITE [None]
  - FACE OEDEMA [None]
  - GASTRIC ULCER [None]
  - MALAISE [None]
  - NAUSEA [None]
  - OEDEMA PERIPHERAL [None]
  - OESOPHAGEAL CARCINOMA [None]
  - OESOPHAGEAL ULCER [None]
  - PLEURAL EFFUSION [None]
  - VOMITING [None]
  - WEIGHT INCREASED [None]
